FAERS Safety Report 25504210 (Version 1)
Quarter: 2025Q3

REPORT INFORMATION
  Report Type: Spontaneous
  Country: US (occurrence: None)
  Receive Date: 20250701
  Receipt Date: 20250701
  Transmission Date: 20251021
  Serious: Yes (Death)
  Sender: FDA-CTU
  Company Number: None

PATIENT
  Age: 46 Year
  Sex: Female
  Weight: 94.5 kg

DRUGS (1)
  1. CHLORPROMAZINE [Suspect]
     Active Substance: CHLORPROMAZINE
     Indication: Insomnia
     Route: 048
     Dates: start: 20241210, end: 20250112

REACTIONS (2)
  - White blood cell count decreased [None]
  - Infection susceptibility increased [None]

NARRATIVE: CASE EVENT DATE: 20241212
